FAERS Safety Report 8354611 (Version 2)
Quarter: 2013Q3

REPORT INFORMATION
  Report Type: Spontaneous
  Country: FR (occurrence: FR)
  Receive Date: 20120125
  Receipt Date: 20130711
  Transmission Date: 20140515
  Serious: Yes (Hospitalization, Other)
  Sender: FDA-Public Use
  Company Number: FR-ASTRAZENECA-2012SE04099

PATIENT
  Age: 65 Year
  Sex: Female

DRUGS (11)
  1. ARIMIDEX [Suspect]
     Indication: INVASIVE DUCTAL BREAST CARCINOMA
     Route: 048
     Dates: end: 20111114
  2. TRIATEC [Suspect]
     Indication: CARDIAC FAILURE
     Route: 048
     Dates: start: 20110920, end: 20111114
  3. TRIATEC [Suspect]
     Indication: CARDIAC FAILURE
     Route: 048
  4. LASILIX [Suspect]
     Indication: CARDIAC FAILURE
     Route: 065
     Dates: start: 201110, end: 20111114
  5. LEVOTHYROX [Concomitant]
  6. SOLUPRED [Concomitant]
  7. INEXIUM [Concomitant]
  8. DIFFU K [Concomitant]
  9. PARACETAMOL [Concomitant]
  10. MUTESA [Concomitant]
  11. CORTICOSTEROID [Concomitant]
     Indication: ADRENAL INSUFFICIENCY
     Dates: start: 201107

REACTIONS (3)
  - Pancytopenia [Recovered/Resolved]
  - Neuroectodermal neoplasm [Unknown]
  - Cardiac failure [Unknown]
